FAERS Safety Report 13861699 (Version 3)
Quarter: 2017Q4

REPORT INFORMATION
  Report Type: Report from Study
  Country: KR (occurrence: KR)
  Receive Date: 20170811
  Receipt Date: 20171106
  Transmission Date: 20180320
  Serious: Yes (Death)
  Sender: FDA-Public Use
  Company Number: KR-SYNEX-T201703335

PATIENT
  Age: 12 Day
  Sex: Female
  Weight: 5 kg

DRUGS (13)
  1. MEROPENEM. [Concomitant]
     Active Substance: MEROPENEM
     Indication: PRODUCT USED FOR UNKNOWN INDICATION
     Dosage: 450 MG/DAY
     Route: 042
     Dates: start: 20170118, end: 20170119
  2. DOBUTAMINE [Concomitant]
     Active Substance: DOBUTAMINE\DOBUTAMINE HYDROCHLORIDE
     Indication: PRODUCT USED FOR UNKNOWN INDICATION
     Dosage: 45 MG/DAY
     Route: 042
     Dates: start: 20170119, end: 20170119
  3. NITRIC OXIDE. [Suspect]
     Active Substance: NITRIC OXIDE
     Indication: NEONATAL RESPIRATORY DISTRESS SYNDROME
     Dosage: 20 PPM
     Dates: start: 20170119, end: 20170119
  4. PRIMACOR [Concomitant]
     Active Substance: MILRINONE LACTATE
     Indication: PRODUCT USED FOR UNKNOWN INDICATION
     Dosage: 2.3 MG/DAY
     Route: 042
     Dates: start: 20170118, end: 20170119
  5. LASIX [Concomitant]
     Active Substance: FUROSEMIDE
     Indication: PRODUCT USED FOR UNKNOWN INDICATION
     Dosage: 8 MG
     Route: 042
     Dates: start: 20170113, end: 20170119
  6. DEXAMETHASONE. [Concomitant]
     Active Substance: DEXAMETHASONE
     Indication: PRODUCT USED FOR UNKNOWN INDICATION
     Dosage: 2 MG
     Route: 042
     Dates: start: 20170113, end: 20170119
  7. PANTOLOC [Concomitant]
     Active Substance: PANTOPRAZOLE SODIUM
     Indication: PRODUCT USED FOR UNKNOWN INDICATION
     Dosage: 4.5 MG
     Route: 042
     Dates: start: 20170119, end: 20170119
  8. CEFOTAXIME [Concomitant]
     Active Substance: CEFOTAXIME SODIUM
     Indication: PRODUCT USED FOR UNKNOWN INDICATION
     Dosage: 190 MG
     Route: 042
     Dates: start: 20170119, end: 20170119
  9. NITRIC OXIDE. [Suspect]
     Active Substance: NITRIC OXIDE
     Indication: PULMONARY HYPERTENSION
  10. FENTANYL. [Concomitant]
     Active Substance: FENTANYL
     Indication: PRODUCT USED FOR UNKNOWN INDICATION
     Dosage: 480 MCG/DAY
     Route: 042
     Dates: start: 20170115, end: 20170119
  11. IV GLOBULIN S [Concomitant]
     Indication: PRODUCT USED FOR UNKNOWN INDICATION
     Dosage: 2.5 GRAM/DAY
     Route: 042
     Dates: start: 20170118, end: 20170119
  12. VITAMIN K [Concomitant]
     Active Substance: PHYTONADIONE
     Indication: PRODUCT USED FOR UNKNOWN INDICATION
     Dosage: 2 MG
     Route: 030
     Dates: start: 20170117, end: 20170119
  13. VIAGRA [Concomitant]
     Active Substance: SILDENAFIL CITRATE
     Indication: PRODUCT USED FOR UNKNOWN INDICATION
     Dosage: 6.2 MG/DAY
     Route: 048
     Dates: start: 20170119, end: 20170119

REACTIONS (2)
  - Sepsis [Fatal]
  - Gastrointestinal haemorrhage [Recovered/Resolved]

NARRATIVE: CASE EVENT DATE: 20170119
